FAERS Safety Report 6405033-1 (Version None)
Quarter: 2009Q4

REPORT INFORMATION
  Report Type: 
  Country: None (occurrence: None)
  Receive Date: 20091019
  Receipt Date: 20090929
  Transmission Date: 20100525
  Serious: No
  Sender: FDA-Public Use
  Company Number: US-BAYER-200924228NA

PATIENT
  Age: 73 Year
  Sex: Male
  Weight: 99 kg

DRUGS (12)
  1. LEUKINE [Suspect]
     Indication: MALIGNANT MELANOMA
     Dosage: AS USED: 250 ?G
     Route: 058
     Dates: start: 20081111, end: 20090505
  2. LEUKINE [Suspect]
     Dosage: AS USED: 250 ?G
     Route: 058
     Dates: start: 20090501
  3. HYDROCHLOROTHIAZIDE [Concomitant]
  4. ASPIRIN [Concomitant]
  5. VYTORIN [Concomitant]
  6. LISINOPRIL [Concomitant]
  7. TOPROL-XL [Concomitant]
  8. POTASSIUM CHLORIDE [Concomitant]
  9. MIRAPEX [Concomitant]
  10. METOPROLOL [Concomitant]
  11. PLAVIX [Concomitant]
  12. CARBIDOPA WITH LEVODOPA [Concomitant]

REACTIONS (5)
  - BACK PAIN [None]
  - COUGH [None]
  - DYSPNOEA [None]
  - OEDEMA PERIPHERAL [None]
  - PERFORMANCE STATUS DECREASED [None]
